FAERS Safety Report 4730164-1 (Version None)
Quarter: 2005Q3

REPORT INFORMATION
  Report Type: 
  Country: None (occurrence: None)
  Receive Date: 20050729
  Receipt Date: 20050729
  Transmission Date: 20060218
  Serious: Yes (Hospitalization, Other)
  Sender: FDA-Public Use
  Company Number: None

PATIENT
  Sex: Male
  Weight: 85 kg

DRUGS (3)
  1. FLUOROURACIL [Suspect]
     Indication: ANAL CANCER
     Dosage: SEE IMAGE
     Dates: start: 20050627, end: 20050701
  2. MITOMYCIN [Suspect]
     Dates: start: 20050627, end: 20050627
  3. RADIATION [Suspect]
     Dosage: SEE IMAGE
     Dates: start: 20050627

REACTIONS (5)
  - BODY TEMPERATURE INCREASED [None]
  - FATIGUE [None]
  - IMPAIRED SELF-CARE [None]
  - INSOMNIA [None]
  - MALAISE [None]
